FAERS Safety Report 11518517 (Version 1)
Quarter: 2015Q3

REPORT INFORMATION
  Report Type: Report from Study
  Country: US (occurrence: US)
  Receive Date: 20150917
  Receipt Date: 20150917
  Transmission Date: 20151125
  Serious: Yes (Other)
  Sender: FDA-Public Use
  Company Number: US-AMGEN-USASP2015083804

PATIENT
  Age: 62 Year
  Sex: Male

DRUGS (1)
  1. NPLATE [Suspect]
     Active Substance: ROMIPLOSTIM
     Indication: IMMUNE THROMBOCYTOPENIC PURPURA
     Dosage: UNK
     Route: 065

REACTIONS (18)
  - Contusion [Unknown]
  - Fall [Unknown]
  - Balance disorder [Unknown]
  - Skin injury [Unknown]
  - Back disorder [Unknown]
  - Central venous catheterisation [Unknown]
  - Mouth haemorrhage [Unknown]
  - Musculoskeletal disorder [Unknown]
  - Intervertebral disc disorder [Unknown]
  - Musculoskeletal injury [Unknown]
  - Urticaria [Unknown]
  - Epistaxis [Unknown]
  - Intervertebral disc protrusion [Unknown]
  - Head injury [Unknown]
  - Musculoskeletal chest pain [Unknown]
  - Pain [Unknown]
  - Back pain [Unknown]
  - Local swelling [Unknown]

NARRATIVE: CASE EVENT DATE: 201508
